FAERS Safety Report 13876211 (Version 2)
Quarter: 2017Q3

REPORT INFORMATION
  Report Type: Spontaneous
  Country: US (occurrence: US)
  Receive Date: 20170817
  Receipt Date: 20170921
  Transmission Date: 20171127
  Serious: Yes (Hospitalization, Other)
  Sender: FDA-Public Use
  Company Number: US-009507513-1708USA006690

PATIENT
  Age: 62 Year
  Sex: Female

DRUGS (7)
  1. HYALURONIC ACID [Suspect]
     Active Substance: HYALURONIC ACID
     Indication: MENISCUS INJURY
  2. DEXAMETHASONE. [Suspect]
     Active Substance: DEXAMETHASONE
     Indication: RHEUMATOID ARTHRITIS
     Dosage: UNK
     Route: 014
  3. CIMZIA [Suspect]
     Active Substance: CERTOLIZUMAB PEGOL
     Indication: IMMUNOSUPPRESSION
     Dosage: UNK
     Dates: end: 201109
  4. DEXAMETHASONE. [Suspect]
     Active Substance: DEXAMETHASONE
     Indication: ARTHRALGIA
  5. HYALURONIC ACID [Suspect]
     Active Substance: HYALURONIC ACID
     Indication: RHEUMATOID ARTHRITIS
     Dosage: 5 INJECTIONS; ON A WEEKLEY BASIS
     Route: 014
  6. LIDOCAINE. [Suspect]
     Active Substance: LIDOCAINE
     Indication: RHEUMATOID ARTHRITIS
     Dosage: UNK
     Route: 014
  7. LIDOCAINE. [Suspect]
     Active Substance: LIDOCAINE
     Indication: ARTHRALGIA

REACTIONS (3)
  - Device related infection [Recovering/Resolving]
  - Treatment failure [Unknown]
  - Moraxella infection [Recovering/Resolving]

NARRATIVE: CASE EVENT DATE: 201109
